FAERS Safety Report 20435491 (Version 3)
Quarter: 2022Q2

REPORT INFORMATION
  Report Type: Report from Study
  Country: BR (occurrence: BR)
  Receive Date: 20220206
  Receipt Date: 20220421
  Transmission Date: 20220721
  Serious: Yes (Hospitalization)
  Sender: FDA-Public Use
  Company Number: BR-BIOGEN-2022BI01091539

PATIENT
  Age: 36 Year
  Sex: Female

DRUGS (6)
  1. TYSABRI [Suspect]
     Active Substance: NATALIZUMAB
     Indication: Multiple sclerosis
     Route: 042
     Dates: start: 20210225
  2. PREGABALIN [Concomitant]
     Active Substance: PREGABALIN
     Indication: Fibromyalgia
     Route: 065
  3. VENLAFAXINE [Concomitant]
     Active Substance: VENLAFAXINE HYDROCHLORIDE
     Indication: Fibromyalgia
     Route: 065
  4. DONAREN RETARD (Trazodone Hydrochloride) [Concomitant]
     Indication: Fibromyalgia
     Route: 065
  5. Amplictil (Chlorpromazine Hydrochloride) [Concomitant]
     Indication: Fibromyalgia
     Dosage: 40 DROPS
     Route: 048
  6. Selozok (Metoprolol Succinate) [Concomitant]
     Indication: Arrhythmia
     Route: 065

REACTIONS (5)
  - Migraine [Unknown]
  - COVID-19 [Recovered/Resolved]
  - Musculoskeletal disorder [Recovered/Resolved]
  - Vision blurred [Unknown]
  - Medication error [Recovered/Resolved]

NARRATIVE: CASE EVENT DATE: 20220101
